FAERS Safety Report 18863275 (Version 2)
Quarter: 2021Q1

REPORT INFORMATION
  Report Type: Spontaneous
  Country: CN (occurrence: CN)
  Receive Date: 20210208
  Receipt Date: 20210216
  Transmission Date: 20210420
  Serious: Yes (Hospitalization, Other)
  Sender: FDA-Public Use
  Company Number: CN-GLAXOSMITHKLINE-CNCH2021APC003227

PATIENT
  Age: 52 Year
  Sex: Male
  Weight: 74 kg

DRUGS (7)
  1. AMOXICILLIN. [Suspect]
     Active Substance: AMOXICILLIN
     Indication: PRODUCT USED FOR UNKNOWN INDICATION
     Dosage: UNK
  2. RABEPRAZOLE [Suspect]
     Active Substance: RABEPRAZOLE
     Indication: VOMITING
     Dosage: 10 MG, ONCE A DAY
     Route: 048
     Dates: start: 20210101, end: 20210102
  3. IBUPROFEN. [Suspect]
     Active Substance: IBUPROFEN
     Indication: HEADACHE
     Dosage: 1 DF, BID
     Route: 048
     Dates: start: 20201230, end: 20210101
  4. IBUPROFEN. [Suspect]
     Active Substance: IBUPROFEN
     Dosage: 1 DF, BID
     Route: 048
     Dates: start: 20201230, end: 20210101
  5. MOSAPRIDE CITRATE TABLETS [Suspect]
     Active Substance: MOSAPRIDE CITRATE
     Indication: NAUSEA
     Dosage: UNK
  6. RABEPRAZOLE [Suspect]
     Active Substance: RABEPRAZOLE
     Indication: NAUSEA
     Dosage: 10 MG, ONCE A DAY
  7. MOSAPRIDE CITRATE TABLETS [Suspect]
     Active Substance: MOSAPRIDE CITRATE
     Indication: VOMITING
     Dosage: 5 MG, TID
     Route: 048
     Dates: start: 20210101, end: 20210102

REACTIONS (5)
  - Ocular icterus [Recovering/Resolving]
  - Vomiting [Recovering/Resolving]
  - Nausea [Recovering/Resolving]
  - Hepatic function abnormal [Recovering/Resolving]
  - Jaundice [Recovering/Resolving]

NARRATIVE: CASE EVENT DATE: 20210102
